FAERS Safety Report 7956273-1 (Version None)
Quarter: 2011Q4

REPORT INFORMATION
  Report Type: 
  Country: None (occurrence: None)
  Receive Date: 20111205
  Receipt Date: 20111121
  Transmission Date: 20120403
  Serious: Yes (Other)
  Sender: FDA-Public Use
  Company Number: JP-AMGEN-JPNSP2011058377

PATIENT
  Age: 65 Year
  Sex: Female
  Weight: 52 kg

DRUGS (12)
  1. PREDNISOLONE [Concomitant]
     Indication: RHEUMATOID ARTHRITIS
     Dosage: 3 MG, 1X/DAY
     Route: 048
     Dates: start: 20060501
  2. CINAL [Concomitant]
     Dosage: 1 G, QD
     Route: 048
     Dates: start: 20060501
  3. RHEUMATREX [Concomitant]
     Dosage: 10 MG, WEEKLY
     Route: 048
     Dates: start: 20050401
  4. VOLTAREN [Concomitant]
     Indication: PAIN MANAGEMENT
     Dosage: 37.5 MG, 2X/DAY
     Route: 048
  5. BREDININ [Concomitant]
     Dosage: 100 MG, QD
     Route: 048
     Dates: start: 19910828
  6. PROGRAF [Concomitant]
     Indication: RHEUMATOID ARTHRITIS
     Dosage: 3 MG, QD
     Route: 048
     Dates: start: 20060501, end: 20080701
  7. TAGAMET [Concomitant]
     Indication: GASTRITIS PROPHYLAXIS
     Dosage: 200 MG, 2X/DAY
     Route: 048
  8. IDOMETHINE [Concomitant]
     Indication: PAIN MANAGEMENT
     Dosage: UNK
     Route: 062
  9. ENBREL [Suspect]
     Indication: RHEUMATOID ARTHRITIS
     Dosage: 25 MG, WEEKLY
     Route: 058
     Dates: start: 20070516, end: 20070819
  10. ENBREL [Suspect]
     Dosage: 25 MG, WEEKLY
     Dates: start: 20070819, end: 20090901
  11. RHEUMATREX [Concomitant]
     Dosage: 6 MG, WEEKLY
     Route: 048
     Dates: start: 19910828
  12. BREDININ [Concomitant]
     Dosage: UNK
     Dates: start: 20060501

REACTIONS (2)
  - UVEITIS [None]
  - SARCOIDOSIS [None]
